FAERS Safety Report 23533662 (Version 1)
Quarter: 2024Q1

REPORT INFORMATION
  Report Type: Spontaneous
  Country: FR (occurrence: FR)
  Receive Date: 20240216
  Receipt Date: 20240216
  Transmission Date: 20240410
  Serious: Yes (Other)
  Sender: FDA-Public Use
  Company Number: None

PATIENT
  Age: 27 Year
  Sex: Female

DRUGS (3)
  1. DIPROSONE [Suspect]
     Active Substance: BETAMETHASONE DIPROPIONATE
     Indication: Dermatitis atopic
     Dosage: 2 DOSAGE FORM, QD
     Route: 003
     Dates: start: 20210917, end: 20230715
  2. BETAMETHASONE VALERATE [Suspect]
     Active Substance: BETAMETHASONE VALERATE
     Indication: Dermatitis atopic
     Dosage: 2 DOSAGE FORM, QD
     Route: 003
     Dates: start: 20210917, end: 20230715
  3. NERISONE [Suspect]
     Active Substance: DIFLUCORTOLONE VALERATE
     Indication: Dermatitis atopic
     Dosage: 2 DOSAGE FORM, QD
     Route: 003
     Dates: start: 20210917, end: 20230715

REACTIONS (5)
  - Diffuse alopecia [Recovering/Resolving]
  - Eczema [Recovering/Resolving]
  - Rebound effect [Recovering/Resolving]
  - Skin burning sensation [Recovering/Resolving]
  - Erythema [Recovering/Resolving]

NARRATIVE: CASE EVENT DATE: 20230715
